FAERS Safety Report 5468026-7 (Version None)
Quarter: 2007Q3

REPORT INFORMATION
  Report Type: 
  Country: None (occurrence: None)
  Receive Date: 20070926
  Receipt Date: 20070917
  Transmission Date: 20080115
  Serious: Yes (Hospitalization)
  Sender: FDA-Public Use
  Company Number: PHHO2006DK18429

PATIENT
  Age: 65 Year
  Sex: Female
  Weight: 62 kg

DRUGS (1)
  1. TAMOXIFEN CITRATE [Suspect]
     Indication: BREAST CANCER
     Dosage: DOUBLE BLIND
     Route: 048
     Dates: start: 20021116

REACTIONS (4)
  - FALL [None]
  - FEMORAL NECK FRACTURE [None]
  - OSTEOPOROSIS [None]
  - OSTEOSYNTHESIS [None]
